FAERS Safety Report 24819532 (Version 1)
Quarter: 2025Q1

REPORT INFORMATION
  Report Type: Spontaneous
  Country: FR (occurrence: FR)
  Receive Date: 20250108
  Receipt Date: 20250108
  Transmission Date: 20250408
  Serious: Yes (Other)
  Sender: TEVA
  Company Number: None

PATIENT
  Age: 77 Year
  Sex: Female
  Weight: 60 kg

DRUGS (2)
  1. PACLITAXEL [Suspect]
     Active Substance: PACLITAXEL
     Indication: Clear cell endometrial carcinoma
     Route: 042
     Dates: start: 20230921, end: 20230921
  2. CARBOPLATIN [Concomitant]
     Active Substance: CARBOPLATIN
     Indication: Clear cell endometrial carcinoma
     Dosage: 4 CYCLES EVERY 21 DAYS: C1 OF 450 MG ON 09/21/23, C2 OF 450 MG, C3 OF 450 MG, C4 OF 440 MG ON 11/...
     Route: 042
     Dates: start: 20230921, end: 20241024

REACTIONS (1)
  - Neuropathy peripheral [Recovered/Resolved]

NARRATIVE: CASE EVENT DATE: 20230922
